FAERS Safety Report 7150077-8 (Version None)
Quarter: 2010Q4

REPORT INFORMATION
  Report Type: 
  Country: None (occurrence: None)
  Receive Date: 20101210
  Receipt Date: 20101202
  Transmission Date: 20110411
  Serious: Yes (Hospitalization, Other)
  Sender: FDA-Public Use
  Company Number: US-BAXTER-2010BH029372

PATIENT
  Age: 54 Year
  Sex: Female

DRUGS (2)
  1. GAMMAGARD LIQUID [Suspect]
     Indication: PRODUCT USED FOR UNKNOWN INDICATION
     Route: 042
     Dates: start: 20101108, end: 20101101
  2. GAMMAGARD LIQUID [Suspect]
     Route: 042
     Dates: start: 20101004, end: 20101001

REACTIONS (5)
  - CHILLS [None]
  - HEADACHE [None]
  - NAUSEA [None]
  - PHOTOPHOBIA [None]
  - VOMITING [None]
